FAERS Safety Report 14404531 (Version 1)
Quarter: 2018Q1

REPORT INFORMATION
  Report Type: Spontaneous
  Country: US (occurrence: US)
  Receive Date: 20180117
  Receipt Date: 20180117
  Transmission Date: 20180509
  Serious: Yes (Other)
  Sender: FDA-Public Use
  Company Number: US-SA-2016SA233334

PATIENT
  Sex: Female

DRUGS (2)
  1. TAXOTERE [Suspect]
     Active Substance: DOCETAXEL
     Indication: BREAST CANCER STAGE II
     Dosage: UNKNOWN DATE IN JANUARY 2011
     Route: 051
     Dates: start: 201101, end: 201101
  2. TAXOTERE [Suspect]
     Active Substance: DOCETAXEL
     Indication: BREAST CANCER STAGE II
     Dosage: ON AN UNKNOWN DATE IN 2010
     Route: 051
     Dates: start: 201012, end: 201012

REACTIONS (7)
  - Anxiety [Unknown]
  - Quality of life decreased [Unknown]
  - Injury [Unknown]
  - Discomfort [Unknown]
  - Impaired work ability [Unknown]
  - Alopecia [Unknown]
  - Emotional distress [Unknown]
